FAERS Safety Report 12170819 (Version 1)
Quarter: 2016Q1

REPORT INFORMATION
  Report Type: Spontaneous
  Country: US (occurrence: None)
  Receive Date: 20160310
  Receipt Date: 20160310
  Transmission Date: 20160526
  Serious: Yes (Other)
  Sender: FDA-Public Use
  Company Number: None

PATIENT
  Age: 69 Year
  Sex: Female
  Weight: 134.27 kg

DRUGS (12)
  1. RESTASIS [Suspect]
     Active Substance: CYCLOSPORINE
     Indication: DRY EYE
     Dosage: 1 SINGLE USE VIAL TWICE DAILY INTO THE EYE
     Route: 031
  2. PROBIOTICS [Concomitant]
     Active Substance: PROBIOTICS NOS
  3. MERIVA [Concomitant]
  4. AMARYL [Concomitant]
     Active Substance: GLIMEPIRIDE
  5. PROTEIN PEA POWDER [Concomitant]
  6. LABETALOL [Concomitant]
     Active Substance: LABETALOL\LABETALOL HYDROCHLORIDE
  7. COD LIVER OIL [Concomitant]
     Active Substance: COD LIVER OIL
  8. SYNTHROID [Concomitant]
     Active Substance: LEVOTHYROXINE SODIUM
  9. LEXAPRO [Concomitant]
     Active Substance: ESCITALOPRAM OXALATE
  10. KAPRYCIDIN A [Concomitant]
  11. VITAMIN C [Concomitant]
     Active Substance: ASCORBIC ACID
  12. DEXILANT [Concomitant]
     Active Substance: DEXLANSOPRAZOLE

REACTIONS (3)
  - Epistaxis [None]
  - Upper-airway cough syndrome [None]
  - Sinusitis [None]
